FAERS Safety Report 8227852-1 (Version None)
Quarter: 2012Q1

REPORT INFORMATION
  Report Type: 
  Country: None (occurrence: None)
  Receive Date: 20120322
  Receipt Date: 20120307
  Transmission Date: 20120608
  Serious: Yes (Death)
  Sender: FDA-Public Use
  Company Number: JP-ROCHE-796938

PATIENT
  Sex: Male
  Weight: 76 kg

DRUGS (14)
  1. FOSRENOL [Concomitant]
     Route: 048
  2. ALFAROL [Concomitant]
     Dosage: 0.5JGXL, 0.25PGXL
     Route: 048
  3. CINAL [Concomitant]
     Route: 048
  4. MAGNESIUM OXIDE [Concomitant]
     Route: 048
  5. PEGASYS [Suspect]
     Indication: HEPATITIS C
     Route: 058
     Dates: start: 20110502, end: 20110713
  6. OMEPRAZOLE [Concomitant]
     Route: 048
  7. CARVEDILOL [Concomitant]
     Route: 048
  8. METHYCOBAL [Concomitant]
     Route: 048
  9. ASPIRIN [Concomitant]
     Route: 048
  10. LIVALO [Concomitant]
     Route: 048
  11. PURSENNID [Concomitant]
     Route: 048
  12. PEGASYS [Suspect]
     Route: 058
     Dates: start: 20110425, end: 20110425
  13. ALLOPURINOL [Concomitant]
     Route: 048
  14. EPADEL [Concomitant]
     Route: 048

REACTIONS (3)
  - THROMBOTIC THROMBOCYTOPENIC PURPURA [None]
  - CEREBRAL INFARCTION [None]
  - PLATELET COUNT DECREASED [None]
